FAERS Safety Report 9868260 (Version 1)
Quarter: 2014Q1

REPORT INFORMATION
  Report Type: Spontaneous
  Country: US (occurrence: US)
  Receive Date: 20140204
  Receipt Date: 20140204
  Transmission Date: 20141002
  Serious: Yes (Other)
  Sender: FDA-Public Use
  Company Number: 2014SP000234

PATIENT
  Age: 34 Year
  Sex: Female

DRUGS (3)
  1. LUNESTA [Suspect]
     Route: 048
     Dates: end: 20140107
  2. LUNESTA [Suspect]
     Route: 048
  3. LUNESTA [Suspect]
     Route: 048
     Dates: start: 201309

REACTIONS (15)
  - Tachycardia [Unknown]
  - Asthenia [Unknown]
  - Weight decreased [Unknown]
  - Palpitations [Not Recovered/Not Resolved]
  - Mania [Unknown]
  - Impulsive behaviour [Unknown]
  - Aggression [Unknown]
  - Hostility [Unknown]
  - Insomnia [Unknown]
  - Panic attack [Not Recovered/Not Resolved]
  - Tremor [Not Recovered/Not Resolved]
  - Nausea [Not Recovered/Not Resolved]
  - Hyperhidrosis [Unknown]
  - Dizziness [Not Recovered/Not Resolved]
  - Anxiety [Not Recovered/Not Resolved]
